FAERS Safety Report 5821283-7 (Version None)
Quarter: 2008Q3

REPORT INFORMATION
  Report Type: 
  Country: None (occurrence: None)
  Receive Date: 20080722
  Receipt Date: 20080722
  Transmission Date: 20090109
  Serious: Yes (Hospitalization)
  Sender: FDA-Public Use
  Company Number: None

PATIENT
  Age: 61 Year
  Sex: Male
  Weight: 84.6 kg

DRUGS (2)
  1. HALOPERIDOL [Suspect]
     Indication: SCHIZOPHRENIA, PARANOID TYPE
     Dosage: 20 MG EVERY DAY IM
     Route: 030
     Dates: start: 20080415, end: 20080417
  2. LORAZEPAM [Suspect]
     Indication: SCHIZOPHRENIA, PARANOID TYPE
     Dosage: 32 MG EVERY DAY OTHER
     Route: 050
     Dates: start: 20080415, end: 20080417

REACTIONS (1)
  - RESPIRATORY DISTRESS [None]
